FAERS Safety Report 23636082 (Version 2)
Quarter: 2024Q2

REPORT INFORMATION
  Report Type: Spontaneous
  Country: JP (occurrence: JP)
  Receive Date: 20240315
  Receipt Date: 20240411
  Transmission Date: 20240716
  Serious: Yes (Disabling, Other)
  Sender: FDA-Public Use
  Company Number: JP-VIATRISJAPAN-2024M1022169AA

PATIENT
  Age: 33 Year
  Sex: Female
  Weight: 89.6 kg

DRUGS (3)
  1. AMLODIPINE BESYLATE [Suspect]
     Active Substance: AMLODIPINE BESYLATE
     Indication: Hypertensive emergency
     Dosage: 5 MILLIGRAM
     Route: 048
  2. AMLODIPINE BESYLATE [Suspect]
     Active Substance: AMLODIPINE BESYLATE
     Dosage: 10 MILLIGRAM
     Route: 048
  3. NICARDIPINE [Suspect]
     Active Substance: NICARDIPINE
     Indication: Hypertensive emergency
     Dosage: 2MG/HOUR
     Route: 042

REACTIONS (1)
  - Optic ischaemic neuropathy [Recovering/Resolving]
